FAERS Safety Report 5570709-5 (Version None)
Quarter: 2007Q4

REPORT INFORMATION
  Report Type: 
  Country: None (occurrence: None)
  Receive Date: 20071221
  Receipt Date: 20071217
  Transmission Date: 20080405
  Serious: Yes (Disabling)
  Sender: FDA-Public Use
  Company Number: CA-ELI_LILLY_AND_COMPANY-CA200711003995

PATIENT
  Sex: Female
  Weight: 73.5 kg

DRUGS (4)
  1. ALIMTA [Suspect]
     Indication: LUNG NEOPLASM MALIGNANT
     Dosage: 850 MG, EVERY 3 WEEKS
     Route: 042
     Dates: start: 20071025
  2. VITAMIN B-12 [Concomitant]
     Dosage: 1000 UG, EVERY 9 WEEKS
  3. FOLIC ACID [Concomitant]
     Dosage: 1 MG, DAILY (1/D)
  4. DECADRON                                /CAN/ [Concomitant]
     Dosage: 8 MG, BID X 3 DAYS

REACTIONS (2)
  - INJECTION SITE ERYTHEMA [None]
  - RASH [None]
